FAERS Safety Report 5119072-4 (Version None)
Quarter: 2006Q3

REPORT INFORMATION
  Report Type: 
  Country: None (occurrence: None)
  Receive Date: 20060927
  Receipt Date: 20060609
  Transmission Date: 20061208
  Serious: Yes (Other)
  Sender: FDA-Public Use
  Company Number: 2006BH010751

PATIENT
  Age: 0 Year
  Sex: Male
  Weight: 7.61 kg

DRUGS (1)
  1. DIANEAL [Suspect]
     Indication: DIALYSIS
     Dosage: 6 L; IP
     Route: 033

REACTIONS (6)
  - CATHETER RELATED COMPLICATION [None]
  - DEHYDRATION [None]
  - DEVICE FAILURE [None]
  - LYMPHOCYTE PERCENTAGE DECREASED [None]
  - PERITONITIS BACTERIAL [None]
  - STAPHYLOCOCCAL INFECTION [None]
